FAERS Safety Report 20346945 (Version 1)
Quarter: 2022Q1

REPORT INFORMATION
  Report Type: Spontaneous
  Country: DE (occurrence: DE)
  Receive Date: 20220118
  Receipt Date: 20220118
  Transmission Date: 20220423
  Serious: Yes (Hospitalization)
  Sender: FDA-Public Use
  Company Number: DE-LUNDBECK-DKLU3042970

PATIENT
  Sex: Male

DRUGS (10)
  1. ESCITALOPRAM OXALATE [Suspect]
     Active Substance: ESCITALOPRAM OXALATE
     Indication: Product used for unknown indication
     Dosage: ACTUAL: 1 DF, QD (1-0-0-0, TABLETS)
     Route: 048
  2. CANDESARTAN CILEXETIL\HYDROCHLOROTHIAZIDE [Suspect]
     Active Substance: CANDESARTAN CILEXETIL\HYDROCHLOROTHIAZIDE
     Indication: Product used for unknown indication
     Dosage: ACTUAL: 1 DF, QD (32 | 5 MG, 1-0-0-0, TABLETS)
     Route: 048
  3. TAMSULOSIN [Concomitant]
     Active Substance: TAMSULOSIN
     Indication: Product used for unknown indication
     Dosage: ACTUAL: 0.4 MG, QD  (0.4 MG, 0-1-0-0, TABLETS)
     Route: 048
  4. VALPROATE SODIUM [Concomitant]
     Active Substance: VALPROATE SODIUM
     Indication: Product used for unknown indication
     Dosage: ACTUAL: 30 MG (30 MG, 2-1-0-0, SUSTAINED-RELEASE TABLETS)
     Route: 048
  5. NALOXONE HYDROCHLORIDE\TILIDINE HYDROCHLORIDE [Concomitant]
     Active Substance: NALOXONE HYDROCHLORIDE\TILIDINE HYDROCHLORIDE
     Indication: Product used for unknown indication
     Dosage: 100 | 8 MG, 1-0-1-0, SUSTAINED-RELEASE TABLETS
     Route: 048
  6. ASPIRIN [Concomitant]
     Active Substance: ASPIRIN
     Indication: Product used for unknown indication
     Dosage: ACTUAL: 100 MG, QD (100 MG, 1-0-0-0, TABLETS)
     Route: 048
  7. OLANZAPINE [Concomitant]
     Active Substance: OLANZAPINE
     Indication: Product used for unknown indication
     Dosage: ACTUAL: 5 MG, QD  (5 MG, 0-0-1-0, TABLETS)
     Route: 048
  8. METAMIZOL [Concomitant]
     Active Substance: METAMIZOLE SODIUM
     Indication: Product used for unknown indication
     Dosage: (30-30-30-0, DROPS)
     Route: 048
  9. LEVOTHYROXINE SODIUM [Concomitant]
     Active Substance: LEVOTHYROXINE SODIUM
     Indication: Product used for unknown indication
     Dosage: ACTUAL: 50 ?G, QD  (50 ?G, 1-0-0-0, TABLETS)
     Route: 048
  10. LERCANIDIPINE [Concomitant]
     Active Substance: LERCANIDIPINE
     Indication: Product used for unknown indication
     Dosage: ACTUAL: 10 MG, QD (10 MG, 0-0-1-0, TABLETS)
     Route: 048

REACTIONS (5)
  - Psychomotor retardation [Unknown]
  - Inappropriate antidiuretic hormone secretion [Unknown]
  - Dizziness [Unknown]
  - Hyponatraemia [Unknown]
  - Confusional state [Unknown]
